FAERS Safety Report 21762792 (Version 1)
Quarter: 2022Q4

REPORT INFORMATION
  Report Type: Spontaneous
  Country: JP (occurrence: JP)
  Receive Date: 20221221
  Receipt Date: 20221221
  Transmission Date: 20230113
  Serious: Yes (Other)
  Sender: FDA-Public Use
  Company Number: JP-LUNDBECK-DKLU3056026

PATIENT
  Sex: Female

DRUGS (2)
  1. ESCITALOPRAM OXALATE [Suspect]
     Active Substance: ESCITALOPRAM OXALATE
     Indication: Depression
     Dosage: UNK
  2. BROTIZOLAM [Suspect]
     Active Substance: BROTIZOLAM
     Indication: Depression
     Dosage: UNK

REACTIONS (4)
  - Hyperthyroidism [Recovered/Resolved]
  - Muscle contractions involuntary [Recovered/Resolved]
  - Dysphagia [Recovered/Resolved]
  - Myoclonus [Recovered/Resolved]
